FAERS Safety Report 4366719-6 (Version None)
Quarter: 2004Q2

REPORT INFORMATION
  Report Type: 
  Country: None (occurrence: None)
  Receive Date: 20040527
  Receipt Date: 20040315
  Transmission Date: 20050107
  Serious: Yes (Death)
  Sender: FDA-Public Use
  Company Number: 2004S1000606

PATIENT
  Age: 66 Year
  Sex: Male

DRUGS (10)
  1. CLOZAPINE [Suspect]
     Indication: SCHIZOPHRENIA
     Dosage: 200 MG/DAY, ORAL
     Route: 048
     Dates: start: 20010306, end: 20040210
  2. CLOZAPINE [Suspect]
     Indication: SCHIZOPHRENIA
     Dosage: 200 MG/DAY, ORAL
     Route: 048
     Dates: start: 20010306, end: 20040210
  3. ASPIRIN [Concomitant]
  4. FERROUS SULFATE TAB [Concomitant]
  5. MORPHINE [Concomitant]
  6. FENTANYL [Concomitant]
  7. DRONABINOL [Concomitant]
  8. FLUVOXAMINE MALEATE [Concomitant]
  9. DOCUSATE SODIUM [Concomitant]
  10. LACTULOSE [Concomitant]

REACTIONS (1)
  - LUNG NEOPLASM MALIGNANT [None]
